FAERS Safety Report 13603403 (Version 1)
Quarter: 2017Q2

REPORT INFORMATION
  Report Type: Spontaneous
  Country: BR (occurrence: BR)
  Receive Date: 20170601
  Receipt Date: 20170601
  Transmission Date: 20170830
  Serious: No
  Sender: FDA-Public Use
  Company Number: BR-PROMETHEUS LABORATORIES-2016PL000047

PATIENT
  Weight: 71 kg

DRUGS (1)
  1. PROLEUKIN [Suspect]
     Active Substance: ALDESLEUKIN
     Indication: CLEAR CELL RENAL CELL CARCINOMA
     Dosage: 600000 IU/KG, UNK
     Route: 065
     Dates: start: 20160501, end: 20160504

REACTIONS (3)
  - Oedema peripheral [Unknown]
  - Skin exfoliation [Unknown]
  - Pruritus [Unknown]
